FAERS Safety Report 20000539 (Version 1)
Quarter: 2021Q4

REPORT INFORMATION
  Report Type: Spontaneous
  Country: US (occurrence: US)
  Receive Date: 20211026
  Receipt Date: 20211026
  Transmission Date: 20220303
  Serious: No
  Sender: FDA-Public Use
  Company Number: None

PATIENT
  Age: 50 Year
  Sex: Female

DRUGS (1)
  1. HUMIRA [Suspect]
     Active Substance: ADALIMUMAB
     Route: 058
     Dates: start: 202105

REACTIONS (9)
  - Injection site urticaria [None]
  - Injection site haemorrhage [None]
  - Tachycardia [None]
  - Dyspnoea [None]
  - Chest discomfort [None]
  - Flatulence [None]
  - Weight increased [None]
  - Fatigue [None]
  - Hypertension [None]

NARRATIVE: CASE EVENT DATE: 20211026
